FAERS Safety Report 7860827-0 (Version None)
Quarter: 2011Q4

REPORT INFORMATION
  Report Type: 
  Country: None (occurrence: None)
  Receive Date: 20111027
  Receipt Date: 20111012
  Transmission Date: 20120403
  Serious: Yes (Hospitalization, Other)
  Sender: FDA-Public Use
  Company Number: US-BAYER-2011-050481

PATIENT
  Age: 33 Year
  Sex: Female

DRUGS (12)
  1. ALBUTEROL [Concomitant]
     Indication: ASTHMA
  2. MOTRIN [Concomitant]
     Dosage: 800 MG, UNK
  3. DIVALPROEX SODIUM [Concomitant]
     Dosage: 500 MG, UNK
  4. CYCLOPHOSPHAMIDE [Concomitant]
     Dosage: 5 MG, UNK
  5. PRILOSEC [Concomitant]
     Dosage: 20 MG, UNK
  6. ACYCLOVIR [Concomitant]
     Dosage: 400 MG, UNK
  7. LEVOTHYROXINE SODIUM [Concomitant]
     Dosage: 150 ?G, UNK
  8. THIORIDAZINE HCL [Concomitant]
  9. MIRTAZAPINE [Concomitant]
     Dosage: 15 MG, UNK
  10. GEODON [Concomitant]
     Dosage: 80 MG, UNK
  11. PREDNISONE [Concomitant]
     Dosage: 20 MG, UNK
  12. DROSPIRENONE AND ETHINYL ESTRADIOL [Suspect]
     Dosage: UNK
     Dates: start: 20090101, end: 20100101

REACTIONS (4)
  - CHOLELITHIASIS [None]
  - CHOLECYSTITIS CHRONIC [None]
  - CHOLECYSTECTOMY [None]
  - PAIN [None]
